FAERS Safety Report 9768553 (Version 2)
Quarter: 2014Q1

REPORT INFORMATION
  Report Type: Spontaneous
  Country: US (occurrence: US)
  Receive Date: 20131217
  Receipt Date: 20140103
  Transmission Date: 20141002
  Serious: No
  Sender: FDA-Public Use
  Company Number: US-009507513-1312USA007795

PATIENT
  Age: 68 Year
  Sex: Female

DRUGS (6)
  1. OXYTROL FOR WOMEN [Suspect]
     Indication: HYPERTONIC BLADDER
     Dosage: UNK, Q4D
     Route: 062
     Dates: start: 20131115
  2. MUCINEX [Concomitant]
     Indication: PRODUCT USED FOR UNKNOWN INDICATION
     Dosage: UNK, UNKNOWN
  3. XYZAL [Concomitant]
     Indication: MYCOTIC ALLERGY
     Dosage: UNK, UNKNOWN
  4. SINGULAIR [Concomitant]
     Indication: ASTHMA
     Dosage: UNK, UNKNOWN
  5. ALVESCO [Concomitant]
     Indication: ASTHMA
     Dosage: UNK, UNKNOWN
  6. BONIVA [Concomitant]
     Indication: OSTEOPENIA
     Dosage: UNK, UNKNOWN

REACTIONS (3)
  - Hyperaesthesia [Unknown]
  - Erythema [Recovered/Resolved]
  - Product quality issue [Unknown]
